FAERS Safety Report 12469545 (Version 1)
Quarter: 2016Q2

REPORT INFORMATION
  Report Type: Report from Study
  Country: US (occurrence: US)
  Receive Date: 20160615
  Receipt Date: 20160615
  Transmission Date: 20160815
  Serious: Yes (Other)
  Sender: FDA-Public Use
  Company Number: US-ABBVIE-16K-163-1648546-00

PATIENT
  Age: 83 Year
  Sex: Male

DRUGS (3)
  1. ZITHROMAX [Concomitant]
     Active Substance: AZITHROMYCIN DIHYDRATE
     Indication: PRODUCT USED FOR UNKNOWN INDICATION
  2. IMODIUM [Concomitant]
     Active Substance: LOPERAMIDE HYDROCHLORIDE
     Indication: PRODUCT USED FOR UNKNOWN INDICATION
  3. HUMIRA [Suspect]
     Active Substance: ADALIMUMAB
     Indication: COLITIS ULCERATIVE
     Route: 058
     Dates: start: 201512

REACTIONS (5)
  - Drug effect incomplete [Unknown]
  - Sinusitis [Recovered/Resolved]
  - Tinnitus [Unknown]
  - Hypoacusis [Unknown]
  - Sinusitis [Unknown]

NARRATIVE: CASE EVENT DATE: 201512
